FAERS Safety Report 7115379-X (Version None)
Quarter: 2010Q4

REPORT INFORMATION
  Report Type: 
  Country: None (occurrence: None)
  Receive Date: 20101117
  Receipt Date: 20101117
  Transmission Date: 20110411
  Serious: Yes (Hospitalization, Other)
  Sender: FDA-Public Use
  Company Number: None

PATIENT
  Age: 55 Year
  Sex: Female
  Weight: 76.6579 kg

DRUGS (2)
  1. ICY HOT PAIN RELIEVING CREAM EXTRA STRENGTH CHATTEM, INC. [Suspect]
     Indication: MUSCLE SPASMS
     Dosage: A NICKEL SIZED DOLLOP NONE CUTANEOUS
     Route: 003
     Dates: start: 20101005, end: 20101005
  2. ICY HOT PAIN RELIEVNG CREAM EXTRA STRENGTH CHATTEM, INC. [Suspect]

REACTIONS (12)
  - APPLICATION SITE PAIN [None]
  - BURN INFECTION [None]
  - BURNING SENSATION [None]
  - BURNS SECOND DEGREE [None]
  - DISCOMFORT [None]
  - GAIT DISTURBANCE [None]
  - IMPAIRED WORK ABILITY [None]
  - INSOMNIA [None]
  - NERVE INJURY [None]
  - NEUROPATHY PERIPHERAL [None]
  - PARAESTHESIA [None]
  - WEIGHT DECREASED [None]
